FAERS Safety Report 18036843 (Version 2)
Quarter: 2020Q3

REPORT INFORMATION
  Report Type: Spontaneous
  Country: AU (occurrence: AU)
  Receive Date: 20200717
  Receipt Date: 20200825
  Transmission Date: 20201103
  Serious: Yes (Life-Threatening, Hospitalization, Disabling, Other)
  Sender: FDA-Public Use
  Company Number: AU-PFIZER INC-2020273705

PATIENT
  Age: 73 Year
  Sex: Male

DRUGS (1)
  1. SOMAC [Suspect]
     Active Substance: PANTOPRAZOLE SODIUM
     Dosage: UNK
     Route: 065

REACTIONS (21)
  - Anxiety [Unknown]
  - Motion sickness [Unknown]
  - Pneumonia [Unknown]
  - Oedema [Unknown]
  - Hypertension [Unknown]
  - Transient ischaemic attack [Unknown]
  - Type 2 diabetes mellitus [Unknown]
  - Dyslipidaemia [Unknown]
  - Condition aggravated [Unknown]
  - Fatigue [Unknown]
  - Tubulointerstitial nephritis [Unknown]
  - Hypercholesterolaemia [Unknown]
  - Chronic kidney disease [Unknown]
  - Drug ineffective [Unknown]
  - Impaired healing [Unknown]
  - Osteoporosis [Unknown]
  - Myocardial infarction [Unknown]
  - Pain [Unknown]
  - Pyrexia [Unknown]
  - Gait disturbance [Unknown]
  - Glaucoma [Unknown]
